FAERS Safety Report 9257891 (Version 3)
Quarter: 2013Q2

REPORT INFORMATION
  Report Type: Spontaneous
  Country: JP (occurrence: None)
  Receive Date: 20130424
  Receipt Date: 20130618
  Transmission Date: 20140414
  Serious: No
  Sender: FDA-Public Use
  Company Number: TCI2013A02130

PATIENT
  Age: 53 Year
  Sex: 0

DRUGS (1)
  1. NESINA [Suspect]
     Indication: DIABETES MELLITUS
     Dosage: 25 MG (25 MG, 1 IN 1 D) PER ORAL
     Route: 048
     Dates: start: 20130318, end: 20130411

REACTIONS (8)
  - Conjunctivitis [None]
  - Stomatitis [None]
  - Drug eruption [None]
  - Oculomucocutaneous syndrome [None]
  - Rash papular [None]
  - Pruritus [None]
  - Alopecia [None]
  - Treatment noncompliance [None]
